FAERS Safety Report 5305104-7 (Version None)
Quarter: 2007Q2

REPORT INFORMATION
  Report Type: 
  Country: None (occurrence: None)
  Receive Date: 20070417
  Receipt Date: 20070405
  Transmission Date: 20071010
  Serious: Yes (Other)
  Sender: FDA-Public Use
  Company Number: 2006BI002805

PATIENT
  Age: 63 Year
  Sex: Female

DRUGS (2)
  1. AVONEX [Suspect]
     Indication: MULTIPLE SCLEROSIS
     Dosage: 30 UG;QW;IM
     Route: 030
  2. BETASERON [Concomitant]

REACTIONS (5)
  - BREAST CANCER [None]
  - CARDIAC DISORDER [None]
  - COORDINATION ABNORMAL [None]
  - FATIGUE [None]
  - PERONEAL NERVE PALSY [None]
